FAERS Safety Report 9422830 (Version 4)
Quarter: 2013Q3

REPORT INFORMATION
  Report Type: Report from Study
  Country: US (occurrence: US)
  Receive Date: 20130726
  Receipt Date: 20130925
  Transmission Date: 20140515
  Serious: Yes (Death, Hospitalization, Other)
  Sender: FDA-Public Use
  Company Number: US-PFIZER INC-2013212079

PATIENT
  Age: 44 Year
  Sex: Female
  Weight: 75.4 kg

DRUGS (10)
  1. IRINOTECAN HCL [Suspect]
     Indication: NEOPLASM MALIGNANT
     Dosage: 180 MG/M2 ON DAY 1 OF EACH CYCLE
     Route: 042
     Dates: start: 20130617, end: 20130617
  2. FLUOROURACIL [Suspect]
     Indication: NEOPLASM MALIGNANT
     Dosage: 400 MG/M2 ON DAY 1 OF EACH CYCLE
     Route: 040
     Dates: start: 20130617, end: 20130617
  3. FLUOROURACIL [Suspect]
     Dosage: 2400 MG/M2 CONTINUOUS INFUSION OVER 46-48 HOURS
     Route: 041
     Dates: start: 20130617, end: 20130617
  4. FOLINIC ACID [Suspect]
     Indication: NEOPLASM MALIGNANT
     Dosage: 400 MG/M2 ON DAY 1 OF EACH CYCLE
     Route: 065
     Dates: start: 20130617, end: 20130617
  5. CEFEPIME HYDROCHLORIDE [Concomitant]
     Dosage: UNK
  6. METOPROLOL TARTRATE [Concomitant]
     Dosage: UNK
     Dates: start: 2010
  7. OXYCODONE HYDROCHLORIDE [Concomitant]
     Dosage: UNK
     Dates: start: 20130610
  8. HYDROCODONE W/ACETAMINOPHEN [Concomitant]
  9. BECLOMETASONE DIPROPIONATE [Concomitant]
  10. IBUPROFEN SODIUM [Concomitant]

REACTIONS (2)
  - Respiratory failure [Fatal]
  - Pneumonia [Not Recovered/Not Resolved]
